FAERS Safety Report 9662496 (Version 2)
Quarter: 2013Q4

REPORT INFORMATION
  Report Type: Spontaneous
  Country: US (occurrence: US)
  Receive Date: 20131031
  Receipt Date: 20131031
  Transmission Date: 20140711
  Serious: No
  Sender: FDA-Public Use
  Company Number: US-PURDUE-USA-2010-0056204

PATIENT
  Sex: Male

DRUGS (3)
  1. OXYCONTIN (NDA 22-272) [Suspect]
     Indication: PRODUCT USED FOR UNKNOWN INDICATION
     Dosage: 40 MG, Q12H
  2. OXYCONTIN (NDA 22-272) [Suspect]
     Dosage: 20 MG, Q12H
  3. OXYCONTIN (NDA 22-272) [Suspect]
     Dosage: 10 MG, QID
     Route: 048

REACTIONS (1)
  - Drug ineffective [Unknown]
